FAERS Safety Report 5083517-9 (Version None)
Quarter: 2006Q3

REPORT INFORMATION
  Report Type: 
  Country: None (occurrence: None)
  Receive Date: 20060818
  Receipt Date: 20060808
  Transmission Date: 20061208
  Serious: Yes (Other)
  Sender: FDA-Public Use
  Company Number: GB-JNJFOC-20050600691

PATIENT
  Sex: Female
  Weight: 87 kg

DRUGS (5)
  1. SPORANOX [Suspect]
     Indication: TINEA VERSICOLOUR
     Route: 048
     Dates: start: 20050426, end: 20050430
  2. CILEST [Suspect]
     Indication: CONTRACEPTION
     Route: 048
  3. SALMETEROL [Concomitant]
     Indication: ASTHMA
     Dosage: 25
     Route: 055
  4. ALBUTEROL SPIROS [Concomitant]
     Dosage: 100 PRN
     Route: 055
  5. FLUTICASONE PROPIONATE [Concomitant]
     Dosage: 250
     Route: 055

REACTIONS (3)
  - DRUG EXPOSURE DURING PREGNANCY [None]
  - PREGNANCY ON ORAL CONTRACEPTIVE [None]
  - UNINTENDED PREGNANCY [None]
